FAERS Safety Report 5208543-8 (Version None)
Quarter: 2007Q1

REPORT INFORMATION
  Report Type: 
  Country: None (occurrence: None)
  Receive Date: 20070115
  Receipt Date: 20070111
  Transmission Date: 20070707
  Serious: Yes (Other)
  Sender: FDA-Public Use
  Company Number: GB-BOEHRINGER INGELHEIM PHARMACEUTICALS, INC.-2007-UK-00132UK

PATIENT
  Age: 63 Year
  Sex: Female
  Weight: 82 kg

DRUGS (4)
  1. SPIRIVA [Suspect]
     Indication: CHRONIC OBSTRUCTIVE PULMONARY DISEASE
     Route: 055
     Dates: start: 20061215, end: 20061217
  2. CITALOPRAM HYDROBROMIDE [Concomitant]
     Indication: DEPRESSION
     Route: 048
     Dates: start: 20031223
  3. DIHYDROCODEINE BITARTRATE INJ [Concomitant]
     Indication: ARTHRALGIA
     Dates: start: 20030612
  4. RALOXIFENE HCL [Concomitant]
     Indication: OSTEOPENIA
     Route: 048
     Dates: start: 20021022

REACTIONS (3)
  - ORBITAL OEDEMA [None]
  - RASH [None]
  - URTICARIA [None]
